FAERS Safety Report 6262351-8 (Version None)
Quarter: 2009Q3

REPORT INFORMATION
  Report Type: 
  Country: None (occurrence: None)
  Receive Date: 20090709
  Receipt Date: 20090701
  Transmission Date: 20100115
  Serious: Yes (Other)
  Sender: FDA-Public Use
  Company Number: PHHY2009BR27155

PATIENT
  Age: 22 Year
  Sex: Female

DRUGS (1)
  1. METHERGINE [Suspect]
     Indication: HAEMORRHAGE
     Dosage: 0.125 MG, Q12H
     Route: 048
     Dates: start: 20090628

REACTIONS (2)
  - DYSSTASIA [None]
  - PAIN IN EXTREMITY [None]
